FAERS Safety Report 24655857 (Version 1)
Quarter: 2024Q4

REPORT INFORMATION
  Report Type: Spontaneous
  Country: US (occurrence: US)
  Receive Date: 20241124
  Receipt Date: 20241124
  Transmission Date: 20250115
  Serious: Yes (Other)
  Sender: CSL BEHRING
  Company Number: US-BEH-2024185846

PATIENT
  Sex: Female

DRUGS (56)
  1. HIZENTRA [Suspect]
     Active Substance: HUMAN IMMUNOGLOBULIN G
     Indication: Immunodeficiency common variable
     Dosage: 10GM/50ML EVERY  WEEK
     Route: 058
     Dates: start: 20241029
  2. HIZENTRA [Suspect]
     Active Substance: HUMAN IMMUNOGLOBULIN G
     Dosage: 04 GM/20ML EVERY  WEEK
     Route: 058
     Dates: start: 20241029
  3. ALBUTEROL [Concomitant]
     Active Substance: ALBUTEROL
  4. AMITRIPTYLINE HYDROCHLORIDE [Concomitant]
     Active Substance: AMITRIPTYLINE HYDROCHLORIDE
     Dosage: 25 MG
  5. BENZONATATE [Concomitant]
     Active Substance: BENZONATATE
     Dosage: 100 MG CAPSULE
  6. BOOSTRIX-IPV [Concomitant]
     Active Substance: DIPHTHERIA AND TETANUS TOXOIDS AND ACELLULAR PERTUSSIS ADSORBED AND INACTIVATED POLIOVIRUS VACCINE
  7. BUDESONIDE [Concomitant]
     Active Substance: BUDESONIDE
     Dosage: 0.5 MG
  8. CARBAMAZEPINE [Concomitant]
     Active Substance: CARBAMAZEPINE
     Dosage: 100 MG CAPSULE
  9. CELECOXIB [Concomitant]
     Active Substance: CELECOXIB
     Dosage: 200 MG
  10. CETIRIZINE [Concomitant]
     Active Substance: CETIRIZINE HYDROCHLORIDE
     Dosage: 10 MG
  11. CLOBETASOL [Concomitant]
     Active Substance: CLOBETASOL
     Dosage: 0.5 %
  12. CLOBETASOL [Concomitant]
     Active Substance: CLOBETASOL
     Dosage: 0.05 %
  13. Clonidine bnm [Concomitant]
  14. Cuvitru 1 [Concomitant]
     Dosage: 10/50ML INJECTION
  15. Cuvitru 1 [Concomitant]
     Dosage: 4GM/20ML SOLUTION
  16. Cuvitru 1 [Concomitant]
     Dosage: 4GM/20ML 10 GM/50ML SDV
  17. CYCLOBENZAPRINE [Concomitant]
     Active Substance: CYCLOBENZAPRINE
     Dosage: TABLET
  18. EPINEPHRINE BITARTRATE [Concomitant]
     Active Substance: EPINEPHRINE BITARTRATE
     Dosage: 0.3 MG
  19. FAMOTIDINE [Concomitant]
     Active Substance: FAMOTIDINE
     Dosage: 20 MG
  20. FLUCONAZOLE [Concomitant]
     Active Substance: FLUCONAZOLE
     Dosage: 150 MG
  21. FLUCONAZOLE [Concomitant]
     Active Substance: FLUCONAZOLE
     Dosage: 150 MG CRE
  22. FLUCONAZOLE [Concomitant]
     Active Substance: FLUCONAZOLE
     Dosage: SPR 50MCG
  23. FOLIC ACID [Concomitant]
     Active Substance: FOLIC ACID
     Dosage: 1 MG TABLET
  24. GABAPENTIN [Concomitant]
     Active Substance: GABAPENTIN
     Dosage: 300 MG
  25. HUMIRA [Concomitant]
     Active Substance: ADALIMUMAB
     Dosage: CF 80MG/O.8ML PEN (2=2);
  26. HYDROCHLOROTHIAZIDE [Concomitant]
     Active Substance: HYDROCHLOROTHIAZIDE
     Dosage: 25 MG
  27. HYDROXOCOBALAMIN HYDROCHLORIDE [Concomitant]
     Active Substance: HYDROXOCOBALAMIN HYDROCHLORIDE
  28. HYDROXYZINE [Concomitant]
     Active Substance: HYDROXYZINE HYDROCHLORIDE
     Dosage: 25 MG
  29. HYOSCYAMINE [Concomitant]
     Active Substance: HYOSCYAMINE
     Dosage: 0.125 MG
  30. IPRATROPIUM [Concomitant]
     Active Substance: IPRATROPIUM
     Dosage: SPR 0.03%
  31. KENALOG [Concomitant]
     Active Substance: TRIAMCINOLONE ACETONIDE
     Dosage: 40 INJ 40MG/ML
  32. LIDO [Concomitant]
     Dosage: LIDO/PRILOCN CRE 2.5-2.5%;
  33. PRILOCAINE [Concomitant]
     Active Substance: PRILOCAINE
     Dosage: CRE 2.5%;
  34. MEDROXYPROGES LENS [Concomitant]
     Dosage: 150MG/ML
  35. METHOTREXATE [Concomitant]
     Active Substance: METHOTREXATE
     Dosage: INJ 25MG/ML
  36. MONTELUKAST 1 A PHARMA [Concomitant]
     Dosage: 10 MG
  37. NORTRIPTYLIN GLENMARK [Concomitant]
     Dosage: 50 MG CAPSULE
  38. NYSTATIN [Concomitant]
     Active Substance: NYSTATIN
  39. TRIAM A [Concomitant]
  40. OMEPRAZOLE\SODIUM BICARBONATE [Concomitant]
     Active Substance: OMEPRAZOLE\SODIUM BICARBONATE
     Dosage: 40 MG
  41. OMEPRAZOLE\SODIUM BICARBONATE [Concomitant]
     Active Substance: OMEPRAZOLE\SODIUM BICARBONATE
     Dosage: 20 MG
  42. ONDANSETRON HYDROCHLORIDE [Concomitant]
     Active Substance: ONDANSETRON HYDROCHLORIDE
     Dosage: 4 MG
  43. PREDNISONE ACETATE [Concomitant]
     Active Substance: PREDNISONE ACETATE
     Dosage: 10 MG
  44. PREDNISONE ACETATE [Concomitant]
     Active Substance: PREDNISONE ACETATE
     Dosage: 20 MG
  45. PREDNISONE ACETATE [Concomitant]
     Active Substance: PREDNISONE ACETATE
     Dosage: 5 MG
  46. PREGABALIN [Concomitant]
     Active Substance: PREGABALIN
     Dosage: 100 MG
  47. PREGABALIN [Concomitant]
     Active Substance: PREGABALIN
     Dosage: 150 MG
  48. PREGABALIN [Concomitant]
     Active Substance: PREGABALIN
     Dosage: 50 MG
  49. QVAR REDIHALER [Concomitant]
     Active Substance: BECLOMETHASONE DIPROPIONATE
     Dosage: 40 MCG
  50. SCOPOLAMINE [Concomitant]
     Active Substance: SCOPOLAMINE
     Dosage: 1 MG 3 DAY
  51. SULFASALAZIN EN [Concomitant]
     Dosage: 500 MG
  52. TOPAMAX [Concomitant]
     Active Substance: TOPIRAMATE
     Dosage: 100 MG
  53. TOPIRAMATE [Concomitant]
     Active Substance: TOPIRAMATE
     Dosage: 25 MG
  54. TRIAMCIN. ACETON.ACET., MICON.NIT.,NEOM.SULF. [Concomitant]
     Dosage: 40MG/ML
  55. WIXELA INHUB [Concomitant]
     Active Substance: FLUTICASONE PROPIONATE\SALMETEROL XINAFOATE
     Dosage: INHUB AER 100/50
  56. XOLAIR [Concomitant]
     Active Substance: OMALIZUMAB
     Dosage: 150 MG/ML SYR (1=1)

REACTIONS (2)
  - Drug ineffective [Unknown]
  - Skin lesion [Unknown]
